FAERS Safety Report 18573976 (Version 1)
Quarter: 2020Q4

REPORT INFORMATION
  Report Type: Spontaneous
  Country: US (occurrence: US)
  Receive Date: 20201202
  Receipt Date: 20201202
  Transmission Date: 20210114
  Serious: No
  Sender: FDA-Public Use
  Company Number: None

PATIENT
  Age: 32 Year
  Sex: Female
  Weight: 85.73 kg

DRUGS (1)
  1. BELIMUMAB (BELIMUMAB 400MG/VIL INJ) [Suspect]
     Active Substance: BELIMUMAB
     Indication: SYSTEMIC LUPUS ERYTHEMATOSUS
     Dates: start: 20190702, end: 20190702

REACTIONS (3)
  - Urticaria [None]
  - Erythema multiforme [None]
  - Pruritus [None]

NARRATIVE: CASE EVENT DATE: 20190702
